FAERS Safety Report 20591358 (Version 2)
Quarter: 2022Q1

REPORT INFORMATION
  Report Type: Spontaneous
  Country: ES (occurrence: ES)
  Receive Date: 20220314
  Receipt Date: 20220323
  Transmission Date: 20220423
  Serious: Yes (Hospitalization, Other)
  Sender: FDA-Public Use
  Company Number: ES-VALIDUS PHARMACEUTICALS LLC-ES-VDP-2022-015162

PATIENT

DRUGS (4)
  1. FUROSEMIDE [Suspect]
     Active Substance: FUROSEMIDE
     Indication: Hepatic cirrhosis
     Dosage: 40 MILLIGRAM, QD
     Route: 048
     Dates: start: 20190912, end: 20220131
  2. PROPRANOLOL [Suspect]
     Active Substance: PROPRANOLOL HYDROCHLORIDE
     Indication: Varices oesophageal
     Dosage: 20 MILLIGRAM, BID, 2-0-2
     Route: 048
     Dates: start: 20190402, end: 20220131
  3. OMNIPAQUE [Suspect]
     Active Substance: IOHEXOL
     Indication: Computerised tomogram abdomen
     Dosage: 120 MILLILITER, TOTAL, 120 ML OF CONTRAST OMNIPAQUE 350 AT 2.5 ML/SEC
     Route: 042
     Dates: start: 20220128, end: 20220128
  4. SPIRONOLACTONE [Suspect]
     Active Substance: SPIRONOLACTONE
     Indication: Hepatic cirrhosis
     Dosage: 100 MILLIGRAM, QD
     Route: 048
     Dates: start: 20190912, end: 20220131

REACTIONS (1)
  - Acute kidney injury [Recovered/Resolved]
